FAERS Safety Report 5979515-0 (Version None)
Quarter: 2008Q4

REPORT INFORMATION
  Report Type: 
  Country: None (occurrence: None)
  Receive Date: 20081204
  Receipt Date: 20081201
  Transmission Date: 20090506
  Serious: Yes (Hospitalization, Other)
  Sender: FDA-Public Use
  Company Number: KR-ROXANE LABORATORIES, INC.-2008-RO-00311RO

PATIENT
  Age: 8 Year
  Sex: Female

DRUGS (9)
  1. MYCOPHENOLATE MOFETIL [Suspect]
     Indication: IMMUNOSUPPRESSANT DRUG THERAPY
  2. MYCOPHENOLATE MOFETIL [Suspect]
     Dates: start: 20070101
  3. MYCOPHENOLATE MOFETIL [Suspect]
     Dates: start: 20041001
  4. TACROLIMUS [Suspect]
     Indication: IMMUNOSUPPRESSANT DRUG THERAPY
     Dates: start: 20041001
  5. PREDNISOLONE [Suspect]
     Indication: IMMUNOSUPPRESSANT DRUG THERAPY
  6. PREDNISOLONE [Suspect]
     Dates: start: 20070101
  7. TPN [Concomitant]
     Indication: PANCREATITIS
  8. GABEXATE MESILATE [Concomitant]
     Indication: PANCREATITIS
  9. ACYCLOVIR [Concomitant]
     Indication: PANCREATITIS

REACTIONS (4)
  - ADENOVIRUS INFECTION [None]
  - HERPES ZOSTER [None]
  - NEPHROPATHY TOXIC [None]
  - PANCREATITIS [None]
